FAERS Safety Report 23650448 (Version 3)
Quarter: 2025Q4

REPORT INFORMATION
  Report Type: Report from Study
  Country: US (occurrence: US)
  Receive Date: 20240320
  Receipt Date: 20251013
  Transmission Date: 20260117
  Serious: No
  Sender: BIOGEN
  Company Number: US-BIOGEN-2024BI01255533

PATIENT
  Sex: Female

DRUGS (1)
  1. ZURZUVAE [Suspect]
     Active Substance: ZURANOLONE
     Indication: Product used for unknown indication
     Route: 050

REACTIONS (8)
  - Ataxia [Unknown]
  - Feeling abnormal [Unknown]
  - Cognitive disorder [Unknown]
  - Accident [Recovered/Resolved]
  - Coordination abnormal [Unknown]
  - Somnolence [Recovered/Resolved]
  - Dizziness [Unknown]
  - Fatigue [Unknown]
